FAERS Safety Report 7203497-7 (Version None)
Quarter: 2010Q4

REPORT INFORMATION
  Report Type: 
  Country: None (occurrence: None)
  Receive Date: 20101230
  Receipt Date: 20101220
  Transmission Date: 20110411
  Serious: Yes (Death, Other)
  Sender: FDA-Public Use
  Company Number: IL-ABBOTT-10P-082-0688468-00

PATIENT
  Age: 23 Year
  Sex: Female
  Weight: 60 kg

DRUGS (17)
  1. VALPROIC ACID [Suspect]
     Indication: CONVULSION
     Dosage: 250 PLUS 125 MG/DAY
  2. VALPROIC ACID [Suspect]
     Indication: PERIPHERAL SENSORY NEUROPATHY
     Dosage: 10 MG/KG/DAY
  3. AMIODARONE [Concomitant]
     Indication: PRODUCT USED FOR UNKNOWN INDICATION
     Dosage: 0.5 MG/MIN
  4. PROPOFOL [Concomitant]
     Indication: CEREBRAL DISORDER
     Dosage: 2-4 MG/KG/HR
  5. PROPOFOL [Concomitant]
     Indication: PROPHYLAXIS
  6. REMIFENTANIL [Concomitant]
     Indication: CEREBRAL DISORDER
     Dosage: 0.125-0.3 MCG/KG/MIN
  7. REMIFENTANIL [Concomitant]
     Indication: PROPHYLAXIS
  8. FENTANYL-100 [Concomitant]
     Indication: INDUCTION OF ANAESTHESIA
     Dosage: 2 MCG/KG
  9. LEVETIRACETAM [Concomitant]
     Indication: PRODUCT USED FOR UNKNOWN INDICATION
  10. LEVETIRACETAM [Concomitant]
     Dosage: 750 MG PER FEEDING TUBE
     Route: 050
  11. APO-LAMOTRIGINE [Concomitant]
     Indication: PRODUCT USED FOR UNKNOWN INDICATION
     Dosage: 250 MG DAILY
  12. APO-LAMOTRIGINE [Concomitant]
     Dosage: 100 MG PER FEEDING TUBE
     Route: 050
  13. NOREPINEPHRINE BITARTRATE [Concomitant]
     Indication: PRODUCT USED FOR UNKNOWN INDICATION
     Dosage: 0.01-0.02 MCG/KG/MIN
  14. NOREPINEPHRINE BITARTRATE [Concomitant]
     Dosage: 0.07 MG/KG/MIN
  15. ETOMIDATE [Concomitant]
     Indication: INDUCTION OF ANAESTHESIA
  16. CISATRACURIUM [Concomitant]
     Indication: INDUCTION OF ANAESTHESIA
  17. CISATRACURIUM [Concomitant]
     Indication: PARALYSIS
     Dosage: 0.08 MCG/KG/MIN

REACTIONS (3)
  - ACUTE HEPATIC FAILURE [None]
  - MENINGITIS [None]
  - PNEUMONIA [None]
